FAERS Safety Report 7350822-2 (Version None)
Quarter: 2011Q1

REPORT INFORMATION
  Report Type: 
  Country: None (occurrence: None)
  Receive Date: 20110314
  Receipt Date: 20110309
  Transmission Date: 20110831
  Serious: Yes (Other)
  Sender: FDA-Public Use
  Company Number: US-PFIZER INC-2011052893

PATIENT
  Sex: Female

DRUGS (4)
  1. LITHIUM [Suspect]
     Dosage: UNK
  2. EFFEXOR XR [Suspect]
     Dosage: UNK
  3. GABAPENTIN [Suspect]
  4. KLONOPIN [Suspect]
     Dosage: UNK

REACTIONS (4)
  - ABNORMAL BEHAVIOUR [None]
  - DIABETES MELLITUS [None]
  - PANIC ATTACK [None]
  - SUICIDAL IDEATION [None]
